FAERS Safety Report 10688589 (Version 2)
Quarter: 2015Q1

REPORT INFORMATION
  Report Type: Spontaneous
  Country: US (occurrence: US)
  Receive Date: 20150102
  Receipt Date: 20150227
  Transmission Date: 20150720
  Serious: Yes (Hospitalization, Other)
  Sender: FDA-Public Use
  Company Number: US-ELI_LILLY_AND_COMPANY-US201412008764

PATIENT
  Age: 23 Year
  Sex: Male

DRUGS (11)
  1. PERAMPANEL [Suspect]
     Active Substance: PERAMPANEL
     Dosage: 4 MG, QD
     Dates: start: 20140723, end: 20150112
  2. PERAMPANEL [Suspect]
     Active Substance: PERAMPANEL
     Dosage: 6 MG, DAILY
     Route: 048
     Dates: start: 20140422
  3. PERAMPANEL [Suspect]
     Active Substance: PERAMPANEL
     Indication: SEIZURE
     Dosage: 2 MG, DAILY
     Route: 048
     Dates: start: 20130820
  4. PERAMPANEL [Suspect]
     Active Substance: PERAMPANEL
     Dosage: 8 MG, DAILY
     Route: 048
     Dates: start: 20140130
  5. CLONIDIN [Concomitant]
  6. PROZAC [Suspect]
     Active Substance: FLUOXETINE HYDROCHLORIDE
     Indication: ANXIETY
     Dosage: 1 DF, UNKNOWN
     Route: 048
     Dates: start: 2014, end: 20141211
  7. PERAMPANEL [Suspect]
     Active Substance: PERAMPANEL
     Dosage: 8 MG, DAILY
     Dates: start: 20140708
  8. ZONISAMIDE. [Concomitant]
     Active Substance: ZONISAMIDE
  9. PERAMPANEL [Suspect]
     Active Substance: PERAMPANEL
     Dosage: 6 MG, QD
     Dates: start: 20140716
  10. SEROQUEL [Concomitant]
     Active Substance: QUETIAPINE FUMARATE
  11. LAMOTRIGIN [Concomitant]
     Active Substance: LAMOTRIGINE

REACTIONS (4)
  - Hallucination [Unknown]
  - Psychogenic seizure [Not Recovered/Not Resolved]
  - Suicidal ideation [Recovered/Resolved]
  - Hallucination [Unknown]

NARRATIVE: CASE EVENT DATE: 20140423
